FAERS Safety Report 8805840 (Version 1)
Quarter: 2012Q4

REPORT INFORMATION
  Report Type: Spontaneous
  Country: US (occurrence: None)
  Receive Date: 20120919
  Receipt Date: 20120919
  Transmission Date: 20130627
  Serious: No
  Sender: FDA-Public Use
  Company Number: None

PATIENT

DRUGS (2)
  1. PHENOBARBITAL [Suspect]
     Route: 048
  2. PHENOBARBITAL [Suspect]
     Route: 048

REACTIONS (2)
  - Confusional state [None]
  - Product dosage form issue [None]
